FAERS Safety Report 6764648-1 (Version None)
Quarter: 2010Q2

REPORT INFORMATION
  Report Type: 
  Country: None (occurrence: None)
  Receive Date: 20100609
  Receipt Date: 20100331
  Transmission Date: 20101027
  Serious: No
  Sender: FDA-Public Use
  Company Number: 2010008280

PATIENT
  Age: 9 Year
  Sex: Male
  Weight: 30.391 kg

DRUGS (1)
  1. CHILDREN'S ZYRTEC ALLERGY [Suspect]
     Indication: SEASONAL ALLERGY
     Dosage: 1 TEASPOON ONCE DAILY,ORAL
     Route: 048
     Dates: start: 20100330

REACTIONS (2)
  - PRODUCT CONTAINER ISSUE [None]
  - THERAPEUTIC RESPONSE DECREASED [None]
